FAERS Safety Report 22808236 (Version 2)
Quarter: 2023Q4

REPORT INFORMATION
  Report Type: Spontaneous
  Country: US (occurrence: US)
  Receive Date: 20230810
  Receipt Date: 20231202
  Transmission Date: 20240110
  Serious: Yes (Other)
  Sender: FDA-Public Use
  Company Number: US-ABBVIE-5361929

PATIENT
  Age: 49 Year
  Sex: Female

DRUGS (1)
  1. LILETTA [Suspect]
     Active Substance: LEVONORGESTREL
     Indication: Product used for unknown indication
     Dosage: TIME INTERVAL: AS NECESSARY: FREQUENCY TEXT: SINGLE?52MG
     Route: 015
     Dates: start: 20230623

REACTIONS (10)
  - Device dislocation [Unknown]
  - Uterine perforation [Unknown]
  - Muscle spasms [Unknown]
  - Uterine leiomyoma [Unknown]
  - Flatulence [Unknown]
  - Device placement issue [Unknown]
  - Heavy menstrual bleeding [Unknown]
  - Ovarian cyst [Unknown]
  - Heavy menstrual bleeding [Unknown]
  - Cervical spinal stenosis [Unknown]

NARRATIVE: CASE EVENT DATE: 20230720
